FAERS Safety Report 24223030 (Version 1)
Quarter: 2024Q3

REPORT INFORMATION
  Report Type: Spontaneous
  Country: US (occurrence: None)
  Receive Date: 20240816
  Receipt Date: 20240816
  Transmission Date: 20241016
  Serious: Yes (Disabling)
  Sender: Public
  Company Number: None

PATIENT
  Age: 37 Year
  Sex: Female
  Weight: 94.95 kg

DRUGS (1)
  1. SERTRALINE HYDROCHLORIDE [Suspect]
     Active Substance: SERTRALINE HYDROCHLORIDE
     Indication: Anxiety
     Dates: start: 20240506, end: 20240515

REACTIONS (9)
  - Insomnia [None]
  - Akathisia [None]
  - Depersonalisation/derealisation disorder [None]
  - Vision blurred [None]
  - Visual snow syndrome [None]
  - Emotional poverty [None]
  - Cognitive disorder [None]
  - Paraesthesia [None]
  - Hypoaesthesia [None]

NARRATIVE: CASE EVENT DATE: 20240515
